FAERS Safety Report 24209319 (Version 2)
Quarter: 2024Q3

REPORT INFORMATION
  Report Type: Spontaneous
  Country: US (occurrence: US)
  Receive Date: 20240814
  Receipt Date: 20240815
  Transmission Date: 20241016
  Serious: Yes (Other)
  Sender: PFIZER
  Company Number: US-PFIZER INC-202400235045

PATIENT
  Age: 20 Year
  Sex: Male

DRUGS (1)
  1. OXBRYTA [Suspect]
     Active Substance: VOXELOTOR
     Dosage: 500MG, 3 TABLETS ONCE DAILY
     Route: 048
     Dates: start: 2020

REACTIONS (1)
  - Bone marrow disorder [Unknown]
